FAERS Safety Report 15998658 (Version 1)
Quarter: 2019Q1

REPORT INFORMATION
  Report Type: Spontaneous
  Country: JP (occurrence: JP)
  Receive Date: 20190223
  Receipt Date: 20190223
  Transmission Date: 20190418
  Serious: Yes (Other)
  Sender: FDA-Public Use
  Company Number: JP-ACCORD-108592

PATIENT
  Age: 70 Year
  Sex: Female

DRUGS (1)
  1. PACLITAXEL/PACLITAXEL LIPOSOME [Suspect]
     Active Substance: PACLITAXEL
     Indication: SMALL INTESTINE CARCINOMA METASTATIC
     Dosage: WEEKLY PACLITAXEL (WPTX) THERAPY

REACTIONS (3)
  - Neuropathy peripheral [Unknown]
  - Neutropenia [Recovered/Resolved]
  - Depilation [Unknown]
